FAERS Safety Report 19610027 (Version 1)
Quarter: 2021Q3

REPORT INFORMATION
  Report Type: Spontaneous
  Country: AU (occurrence: AU)
  Receive Date: 20210726
  Receipt Date: 20210726
  Transmission Date: 20211014
  Serious: Yes (Death)
  Sender: FDA-Public Use
  Company Number: AU-AMNEAL PHARMACEUTICALS-2021-AMRX-02961

PATIENT

DRUGS (8)
  1. CAPECITABINE. [Suspect]
     Active Substance: CAPECITABINE
     Dosage: CYCLE 4 (8 WEEK), 1500 MILLIGRAM/SQ. METER, BID
     Route: 065
  2. TEMOZOLOMIDE. [Suspect]
     Active Substance: TEMOZOLOMIDE
     Indication: GASTROENTEROPANCREATIC NEUROENDOCRINE TUMOUR DISEASE
     Dosage: CYCLE 1 (8 WEEK), 200 MILLIGRAM/SQ. METER, BID
     Route: 065
  3. CAPECITABINE. [Suspect]
     Active Substance: CAPECITABINE
     Dosage: CYCLE 3 (8 WEEK), 1500 MILLIGRAM/SQ. METER, BID
     Route: 065
  4. CAPECITABINE. [Suspect]
     Active Substance: CAPECITABINE
     Dosage: CYCLE 2 (8 WEEK), 1500 MILLIGRAM/SQ. METER, BID
     Route: 065
  5. TEMOZOLOMIDE. [Suspect]
     Active Substance: TEMOZOLOMIDE
     Dosage: CYCLE 2 (8 WEEK), 200 MILLIGRAM/SQ. METER, BID
     Route: 065
  6. TEMOZOLOMIDE. [Suspect]
     Active Substance: TEMOZOLOMIDE
     Dosage: CYCLE 3 (8 WEEK), 200 MILLIGRAM/SQ. METER, BID
     Route: 065
  7. TEMOZOLOMIDE. [Suspect]
     Active Substance: TEMOZOLOMIDE
     Dosage: CYCLE 4 (8 WEEK), 200 MILLIGRAM/SQ. METER, BID
     Route: 065
  8. CAPECITABINE. [Suspect]
     Active Substance: CAPECITABINE
     Indication: GASTROENTEROPANCREATIC NEUROENDOCRINE TUMOUR DISEASE
     Dosage: CYCLE 1 (8 WEEK), 1500 MILLIGRAM/SQ. METER, BID
     Route: 065

REACTIONS (2)
  - Myelodysplastic syndrome [Fatal]
  - Acute leukaemia [Fatal]
